FAERS Safety Report 14754019 (Version 2)
Quarter: 2018Q2

REPORT INFORMATION
  Report Type: Report from Study
  Country: US (occurrence: US)
  Receive Date: 20180412
  Receipt Date: 20180524
  Transmission Date: 20180711
  Serious: Yes (Hospitalization)
  Sender: FDA-Public Use
  Company Number: US-ACTELION-A-NJ2018-170487

PATIENT
  Age: 47 Year
  Sex: Female

DRUGS (2)
  1. TRACLEER [Suspect]
     Active Substance: BOSENTAN
     Indication: PRODUCT USED FOR UNKNOWN INDICATION
     Dosage: 125 MG, BID
     Route: 048
     Dates: start: 20170314
  2. SILDENAFIL. [Concomitant]
     Active Substance: SILDENAFIL
     Dosage: 20 MG, TID
     Dates: start: 20170314

REACTIONS (5)
  - Drug dose omission [Unknown]
  - Abdominal pain [Not Recovered/Not Resolved]
  - Complication associated with device [Recovered/Resolved]
  - Cholecystectomy [Recovered/Resolved]
  - Tracheal ulcer [Not Recovered/Not Resolved]

NARRATIVE: CASE EVENT DATE: 20180303
